FAERS Safety Report 8073691-4 (Version None)
Quarter: 2012Q1

REPORT INFORMATION
  Report Type: 
  Country: None (occurrence: None)
  Receive Date: 20120126
  Receipt Date: 20120119
  Transmission Date: 20120608
  Serious: Yes (Life-Threatening, Hospitalization)
  Sender: FDA-Public Use
  Company Number: PHHO2011BR09808

PATIENT
  Sex: Male
  Weight: 89 kg

DRUGS (8)
  1. HYDRALAZINE HCL [Concomitant]
     Indication: CARDIAC FAILURE
  2. AMIODARONE HCL [Concomitant]
     Indication: ARRHYTHMIA
  3. VALSARTAN [Suspect]
     Indication: CARDIAC FAILURE CHRONIC
     Dosage: 200 MG, BID
     Route: 048
     Dates: start: 20110105, end: 20110607
  4. CARVEDILOL [Concomitant]
     Indication: CARDIAC FAILURE
  5. ISOSORBIDE DINITRATE [Concomitant]
     Indication: CARDIAC FAILURE
     Dosage: UNK
  6. ISORDIL [Concomitant]
  7. ALLOPURINOL [Suspect]
     Indication: HYPERURICAEMIA
     Dosage: UNK
  8. SPIRONOLACTONE [Concomitant]

REACTIONS (16)
  - HEPATOTOXICITY [None]
  - CARDIORENAL SYNDROME [None]
  - DIZZINESS [None]
  - FATIGUE [None]
  - OEDEMA PERIPHERAL [None]
  - ASTHENIA [None]
  - ATRIAL FIBRILLATION [None]
  - DEHYDRATION [None]
  - COUGH [None]
  - WEIGHT DECREASED [None]
  - ACUTE HEPATIC FAILURE [None]
  - CARDIAC FAILURE ACUTE [None]
  - CARDIOMEGALY [None]
  - RENAL FAILURE ACUTE [None]
  - VISION BLURRED [None]
  - NAUSEA [None]
